FAERS Safety Report 15228630 (Version 1)
Quarter: 2018Q3

REPORT INFORMATION
  Report Type: Spontaneous
  Country: US (occurrence: US)
  Receive Date: 20180706
  Receipt Date: 20180706
  Transmission Date: 20181010
  Serious: Yes (Other)
  Sender: FDA-Public Use
  Company Number: None

PATIENT
  Age: 75 Year
  Sex: Female
  Weight: 51.3 kg

DRUGS (4)
  1. PROMACTA [Suspect]
     Active Substance: ELTROMBOPAG OLAMINE
     Indication: IMMUNE THROMBOCYTOPENIC PURPURA
     Route: 048
     Dates: start: 20180131
  2. MULTIVITAMINS [Concomitant]
     Active Substance: VITAMINS
  3. NIFEDIPINE. [Concomitant]
     Active Substance: NIFEDIPINE
  4. GLUCOSAMINE/CHONDROITIN [Concomitant]

REACTIONS (1)
  - Diarrhoea [None]
